FAERS Safety Report 7327205-4 (Version None)
Quarter: 2011Q1

REPORT INFORMATION
  Report Type: 
  Country: None (occurrence: None)
  Receive Date: 20110302
  Receipt Date: 20110221
  Transmission Date: 20110831
  Serious: Yes (Hospitalization)
  Sender: FDA-Public Use
  Company Number: US-ASTRAZENECA-2010SE55771

PATIENT
  Sex: Female

DRUGS (3)
  1. TUMS [Concomitant]
  2. NEXIUM [Suspect]
     Route: 048
  3. PEPTO BISMOL [Concomitant]

REACTIONS (5)
  - GASTROOESOPHAGEAL REFLUX DISEASE [None]
  - DRUG HYPERSENSITIVITY [None]
  - DRUG DOSE OMISSION [None]
  - SURGERY [None]
  - STOMATITIS [None]
